FAERS Safety Report 6092267-1 (Version None)
Quarter: 2009Q1

REPORT INFORMATION
  Report Type: 
  Country: None (occurrence: None)
  Receive Date: 20090225
  Receipt Date: 20090223
  Transmission Date: 20090719
  Serious: Yes (Hospitalization)
  Sender: FDA-Public Use
  Company Number: B0547422A

PATIENT
  Age: 56 Year
  Sex: Male

DRUGS (4)
  1. SAWACILLIN [Suspect]
     Indication: SYPHILIS
     Dosage: 500MG TWICE PER DAY
     Route: 048
     Dates: start: 20070330, end: 20070416
  2. BAKTAR [Suspect]
     Dosage: 2TAB TWICE PER DAY
     Route: 048
     Dates: start: 20070424, end: 20070508
  3. SAWACILLIN [Suspect]
     Dosage: 500MG TWICE PER DAY
     Route: 048
  4. TALION [Concomitant]

REACTIONS (5)
  - ERYTHEMA MULTIFORME [None]
  - GENERAL PHYSICAL HEALTH DETERIORATION [None]
  - MALAISE [None]
  - ORAL DISORDER [None]
  - PYREXIA [None]
